FAERS Safety Report 7851632-X (Version None)
Quarter: 2011Q4

REPORT INFORMATION
  Report Type: 
  Country: None (occurrence: None)
  Receive Date: 20111026
  Receipt Date: 20111018
  Transmission Date: 20120403
  Serious: Yes (Other)
  Sender: FDA-Public Use
  Company Number: PHHY2011MX84955

PATIENT
  Sex: Female

DRUGS (8)
  1. ALPRAZOLAM [Concomitant]
  2. EXFORGE HCT [Suspect]
     Dosage: 1 DF 160/5/12.5 MG) DAILY
     Dates: start: 20111001, end: 20111014
  3. EFFEXOR XR [Concomitant]
     Dosage: 1 DF, QD
  4. VITERNUM [Concomitant]
     Dosage: 1 DF, TID
  5. METOPROLOL TARTRATE [Concomitant]
     Indication: HYPERTENSION
     Dosage: 1 DF, UNK
  6. ALLOPURINOL [Concomitant]
     Dosage: UNK UKN, UNK
     Dates: start: 20070101
  7. EXFORGE HCT [Suspect]
     Indication: HYPERTENSION
     Dosage: 1 DF, (320/10/25 MG) DAILY
     Dates: start: 20110801
  8. LASIX [Concomitant]
     Indication: HYPERTENSION
     Dosage: 1 DF, QD

REACTIONS (7)
  - GENERAL PHYSICAL HEALTH DETERIORATION [None]
  - OEDEMA [None]
  - RENAL FAILURE [None]
  - HYPERTENSION [None]
  - DEPRESSION [None]
  - HYPOTENSION [None]
  - OEDEMA PERIPHERAL [None]
